FAERS Safety Report 13417462 (Version 1)
Quarter: 2017Q2

REPORT INFORMATION
  Report Type: Spontaneous
  Country: US (occurrence: US)
  Receive Date: 20170406
  Receipt Date: 20170406
  Transmission Date: 20170830
  Serious: No
  Sender: FDA-Public Use
  Company Number: US-PFIZER INC-2017151052

PATIENT
  Age: 45 Year
  Sex: Female

DRUGS (1)
  1. GABAPENTIN. [Suspect]
     Active Substance: GABAPENTIN
     Dosage: 300 MG, UNK

REACTIONS (7)
  - Somnolence [Unknown]
  - Vision blurred [Unknown]
  - Scar [Unknown]
  - Drug intolerance [Unknown]
  - Impaired driving ability [Unknown]
  - Nausea [Unknown]
  - Drug ineffective [Unknown]
